FAERS Safety Report 18679057 (Version 1)
Quarter: 2020Q4

REPORT INFORMATION
  Report Type: Report from Study
  Country: BR (occurrence: BR)
  Receive Date: 20201230
  Receipt Date: 20201230
  Transmission Date: 20210114
  Serious: Yes (Death, Other)
  Sender: FDA-Public Use
  Company Number: BR-JNJFOC-20201248523

PATIENT

DRUGS (5)
  1. DALINVI [Suspect]
     Active Substance: DARATUMUMAB
     Indication: PLASMA CELL MYELOMA
     Dosage: DAYS 1,8,15 AND 22 DURING CYCLES 1 - 2 AND EVERY OTHER WEEK IN CYCLES 3 - 4, FOLLOWED BY ASCT
     Route: 042
  2. CYCLOPHOSPHAMIDE. [Suspect]
     Active Substance: CYCLOPHOSPHAMIDE
     Indication: PLASMA CELL MYELOMA
     Dosage: ON DAYS 1,8 AND 15
     Route: 048
  3. CYCLOPHOSPHAMIDE. [Suspect]
     Active Substance: CYCLOPHOSPHAMIDE
     Dosage: 100-200 MG DAYS 1 TO 28
     Route: 048
  4. DEXAMETHASONE. [Suspect]
     Active Substance: DEXAMETHASONE
     Indication: PLASMA CELL MYELOMA
     Dosage: DAYS 1,8,15 AND 22
     Route: 048
  5. THALIDOMIDE [Suspect]
     Active Substance: THALIDOMIDE
     Indication: PLASMA CELL MYELOMA
     Dosage: 100 MG - 200 MG FROM DAYS 1 - 28
     Route: 048

REACTIONS (5)
  - Infusion related reaction [Unknown]
  - Rash [Unknown]
  - Hypertension [Unknown]
  - Neuropathy peripheral [Unknown]
  - Infection [Fatal]
